FAERS Safety Report 26189220 (Version 1)
Quarter: 2025Q4

REPORT INFORMATION
  Report Type: Spontaneous
  Country: US (occurrence: US)
  Receive Date: 20251223
  Receipt Date: 20251223
  Transmission Date: 20260118
  Serious: No
  Sender: NOVARTIS
  Company Number: US-002147023-NVSC2025US192620

PATIENT
  Sex: Female

DRUGS (1)
  1. COSENTYX [Suspect]
     Active Substance: SECUKINUMAB
     Indication: Psoriasis
     Dosage: UNK UNK, QMO (300MG/2ML)
     Route: 065
     Dates: start: 20221201

REACTIONS (5)
  - Product storage error [Unknown]
  - Injection site pain [Unknown]
  - Device issue [Unknown]
  - Device leakage [Unknown]
  - Accidental exposure to product [Unknown]
